FAERS Safety Report 21003842 (Version 1)
Quarter: 2022Q2

REPORT INFORMATION
  Report Type: Spontaneous
  Country: US (occurrence: US)
  Receive Date: 20220624
  Receipt Date: 20220624
  Transmission Date: 20220721
  Serious: Yes (Other)
  Sender: FDA-Public Use
  Company Number: US-BRISTOL-MYERS SQUIBB COMPANY-2022-057427

PATIENT
  Age: 67 Year
  Sex: Male

DRUGS (1)
  1. REVLIMID [Suspect]
     Active Substance: LENALIDOMIDE
     Indication: Product used for unknown indication
     Dosage: EVERY DAY FOR 14 DAYS, FOLLOWED BY 7 DAYS OFF
     Route: 048
     Dates: start: 20220106

REACTIONS (5)
  - Pruritus [Unknown]
  - Deafness [Unknown]
  - Arthralgia [Unknown]
  - Nausea [Unknown]
  - Condition aggravated [Unknown]
